FAERS Safety Report 9105267 (Version 3)
Quarter: 2013Q4

REPORT INFORMATION
  Report Type: Spontaneous
  Country: CA (occurrence: CA)
  Receive Date: 20130220
  Receipt Date: 20131017
  Transmission Date: 20140711
  Serious: Yes (Hospitalization)
  Sender: FDA-Public Use
  Company Number: CA-GLAXOSMITHKLINE-A1011755A

PATIENT
  Sex: Male

DRUGS (18)
  1. FLOLAN [Suspect]
     Indication: PULMONARY HYPERTENSION
     Dosage: 3MLH CONTINUOUS
     Route: 042
     Dates: start: 20120119
  2. FLOLAN DILUENT [Suspect]
     Indication: PULMONARY HYPERTENSION
     Route: 042
     Dates: start: 20120119
  3. CYCLOSPORINE [Concomitant]
  4. CELLCEPT [Concomitant]
  5. LISINOPRIL [Concomitant]
  6. TIAZAC [Concomitant]
  7. TRACLEER [Concomitant]
  8. REVATIO [Concomitant]
  9. LIPITOR [Concomitant]
  10. IRON SUPPLEMENT [Concomitant]
     Route: 048
  11. FOLIC ACID [Concomitant]
  12. PREDNISONE [Concomitant]
  13. CARBAMAZEPINE [Concomitant]
  14. ASA [Concomitant]
  15. VITAMIN D [Concomitant]
  16. CALCIUM [Concomitant]
  17. ARANESP [Concomitant]
  18. VITAMIN B12 [Concomitant]

REACTIONS (6)
  - Dyspnoea [Unknown]
  - Cough [Unknown]
  - Nasopharyngitis [Unknown]
  - Hospitalisation [Unknown]
  - Abdominal discomfort [Recovering/Resolving]
  - Vomiting [Recovering/Resolving]
